FAERS Safety Report 13211051 (Version 1)
Quarter: 2017Q1

REPORT INFORMATION
  Report Type: Spontaneous
  Country: US (occurrence: US)
  Receive Date: 20170210
  Receipt Date: 20170210
  Transmission Date: 20170428
  Serious: No
  Sender: FDA-Public Use
  Company Number: None

PATIENT
  Age: 78 Year
  Sex: Male
  Weight: 115.9 kg

DRUGS (1)
  1. LOVENOX [Suspect]
     Active Substance: ENOXAPARIN SODIUM
     Indication: PRODUCT USED FOR UNKNOWN INDICATION
     Dosage: ROUTE - INJECTION
     Dates: start: 20170113, end: 20170121

REACTIONS (5)
  - Chest pain [None]
  - Dyspnoea [None]
  - Muscle haemorrhage [None]
  - Abdominal wall haematoma [None]
  - Injection site pain [None]

NARRATIVE: CASE EVENT DATE: 20170119
